FAERS Safety Report 6051694-9 (Version None)
Quarter: 2009Q1

REPORT INFORMATION
  Report Type: 
  Country: None (occurrence: None)
  Receive Date: 20090126
  Receipt Date: 20090116
  Transmission Date: 20090719
  Serious: Yes (Other)
  Sender: FDA-Public Use
  Company Number: MX-BRISTOL-MYERS SQUIBB COMPANY-14479364

PATIENT
  Age: 37 Year
  Sex: Female

DRUGS (3)
  1. ABATACEPT [Suspect]
     Indication: RHEUMATOID ARTHRITIS
     Dosage: TOTAL NO OF COURSES-23
     Route: 042
     Dates: start: 20060711, end: 20080318
  2. METHOTREXATE [Suspect]
     Indication: RHEUMATOID ARTHRITIS
     Dates: start: 20060711, end: 20080323
  3. AZATHIOPRINE [Concomitant]
     Dates: start: 20070514

REACTIONS (2)
  - ABORTION SPONTANEOUS [None]
  - PREGNANCY [None]
